FAERS Safety Report 8586759-0 (Version None)
Quarter: 2012Q3

REPORT INFORMATION
  Report Type: 
  Country: None (occurrence: None)
  Receive Date: 20120810
  Receipt Date: 20120807
  Transmission Date: 20120928
  Serious: Yes (Life-Threatening)
  Sender: FDA-Public Use
  Company Number: US-PFIZER INC-2010067038

PATIENT
  Age: 62 Year
  Sex: Female
  Weight: 86.168 kg

DRUGS (11)
  1. HYDROCHLOROTHIAZIDE [Concomitant]
     Dosage: UNK
     Route: 048
     Dates: start: 20090101
  2. PLACEBO [Suspect]
     Indication: RESTLESS LEGS SYNDROME
     Dosage: 0 MG DAILY
     Dates: start: 20100414, end: 20100418
  3. PREGABALIN [Suspect]
     Indication: RESTLESS LEGS SYNDROME
     Dosage: 75 MG, 1X/DAY
     Route: 048
     Dates: start: 20100303, end: 20100307
  4. PREGABALIN [Suspect]
     Dosage: 150 MG, 1X/DAY
     Route: 048
     Dates: start: 20100401, end: 20100403
  5. PREGABALIN [Suspect]
     Dosage: 75 MG, 1X/DAY
     Route: 048
     Dates: start: 20100404, end: 20100406
  6. MOTRIN [Concomitant]
     Dosage: UNK
     Route: 048
     Dates: start: 20050101
  7. CALCIUM CARBONATE [Concomitant]
     Dosage: UNK
     Route: 048
     Dates: start: 20090101
  8. PREGABALIN [Suspect]
     Dosage: 300 MG, 1X/DAY
     Route: 048
     Dates: start: 20100313, end: 20100331
  9. PREGABALIN [Suspect]
     Dosage: 150 MG, 1X/DAY
     Route: 048
     Dates: start: 20100308, end: 20100312
  10. TYLENOL [Concomitant]
     Dosage: UNK
     Route: 048
     Dates: start: 20050101
  11. HYZAAR [Concomitant]
     Dosage: UNK
     Route: 048
     Dates: start: 20090101

REACTIONS (1)
  - SUICIDAL IDEATION [None]
